FAERS Safety Report 5290677-3 (Version None)
Quarter: 2007Q2

REPORT INFORMATION
  Report Type: 
  Country: None (occurrence: None)
  Receive Date: 20070405
  Receipt Date: 20070405
  Transmission Date: 20071010
  Serious: Yes (Hospitalization)
  Sender: FDA-Public Use
  Company Number: None

PATIENT
  Age: 19 Year
  Sex: Female
  Weight: 30.8446 kg

DRUGS (1)
  1. TRIMEPHOPRIM/SULFAMETHOXAZOLE DS [Suspect]
     Indication: INFECTION
     Dosage: 1 TAB BID
     Dates: start: 20061123, end: 20061130

REACTIONS (9)
  - BLISTER [None]
  - ORAL PAIN [None]
  - PRURITUS [None]
  - PYREXIA [None]
  - RASH MACULO-PAPULAR [None]
  - SWOLLEN TONGUE [None]
  - TREATMENT NONCOMPLIANCE [None]
  - UPPER RESPIRATORY TRACT INFECTION [None]
  - VIRAL INFECTION [None]
